FAERS Safety Report 20081808 (Version 1)
Quarter: 2021Q4

REPORT INFORMATION
  Report Type: Spontaneous
  Country: US (occurrence: None)
  Receive Date: 20211117
  Receipt Date: 20211117
  Transmission Date: 20220303
  Serious: Yes (Hospitalization)
  Sender: FDA-Public Use
  Company Number: None

PATIENT
  Age: 65 Year
  Sex: Male
  Weight: 98.9 kg

DRUGS (10)
  1. REMDESIVIR [Suspect]
     Active Substance: REMDESIVIR
     Indication: COVID-19
     Dosage: OTHER FREQUENCY : ONCE;?
     Route: 042
     Dates: start: 20211103, end: 20211103
  2. REMDESIVIR [Suspect]
     Active Substance: REMDESIVIR
     Indication: COVID-19
     Dosage: FREQUENCY : DAILY;?
     Route: 042
     Dates: start: 20211104, end: 20211105
  3. ACETAMINOPHEN [Concomitant]
     Active Substance: ACETAMINOPHEN
  4. ASCORBIC ACID [Concomitant]
     Active Substance: ASCORBIC ACID
  5. BENZONATATE [Concomitant]
     Active Substance: BENZONATATE
  6. DEXAMETHASONE [Concomitant]
     Active Substance: DEXAMETHASONE
  7. ENOXAPARIN [Concomitant]
     Active Substance: ENOXAPARIN
  8. LEVOTHYROXINE [Concomitant]
     Active Substance: LEVOTHYROXINE
  9. PANTOPRAZOLE [Concomitant]
     Active Substance: PANTOPRAZOLE
  10. PAROXETINE [Concomitant]
     Active Substance: PAROXETINE

REACTIONS (3)
  - Heart rate decreased [None]
  - Bradycardia [None]
  - Sinus arrest [None]

NARRATIVE: CASE EVENT DATE: 20211105
